FAERS Safety Report 10298591 (Version 1)
Quarter: 2014Q3

REPORT INFORMATION
  Report Type: Spontaneous
  Country: BE (occurrence: BE)
  Receive Date: 20140711
  Receipt Date: 20140711
  Transmission Date: 20150326
  Serious: Yes (Other)
  Sender: FDA-Public Use
  Company Number: PHHY2014BE084844

PATIENT
  Age: 30 Year
  Sex: Female

DRUGS (8)
  1. ALPRAZOLAM. [Suspect]
     Active Substance: ALPRAZOLAM
  2. ZOLPIDEM [Suspect]
     Active Substance: ZOLPIDEM\ZOLPIDEM TARTRATE
  3. TETRAZEPAM [Suspect]
     Active Substance: TETRAZEPAM
  4. CAPTOPRIL. [Suspect]
     Active Substance: CAPTOPRIL
  5. BROMAZEPAM [Suspect]
     Active Substance: BROMAZEPAM
  6. TRAZODONE HYDROCHLORIDE. [Suspect]
     Active Substance: TRAZODONE HYDROCHLORIDE
  7. DIAZEPAM. [Suspect]
     Active Substance: DIAZEPAM
  8. LORAZEPAM. [Suspect]
     Active Substance: LORAZEPAM

REACTIONS (6)
  - Drug hypersensitivity [Unknown]
  - Skin exfoliation [Unknown]
  - Eczema [Recovered/Resolved]
  - Wrong technique in drug usage process [Unknown]
  - Dermatitis contact [Unknown]
  - Eyelids pruritus [Unknown]
